FAERS Safety Report 16648677 (Version 1)
Quarter: 2019Q3

REPORT INFORMATION
  Report Type: Spontaneous
  Country: BE (occurrence: BE)
  Receive Date: 20190730
  Receipt Date: 20190730
  Transmission Date: 20191004
  Serious: Yes (Hospitalization)
  Sender: FDA-Public Use
  Company Number: BE-SA-2019SA201407

PATIENT
  Age: 38 Year
  Sex: Female

DRUGS (8)
  1. OXALIPLATIN. [Suspect]
     Active Substance: OXALIPLATIN
     Dosage: 110 MG, UNK
     Route: 042
     Dates: start: 20190220, end: 20190220
  2. OXALIPLATIN. [Suspect]
     Active Substance: OXALIPLATIN
     Dosage: 110 MG, UNK
     Route: 042
     Dates: start: 20190430, end: 20190430
  3. OXALIPLATIN. [Suspect]
     Active Substance: OXALIPLATIN
     Dosage: 110 MG, UNK
     Route: 042
     Dates: start: 20190604, end: 20190604
  4. OXALIPLATIN. [Suspect]
     Active Substance: OXALIPLATIN
     Dosage: 110 MG, UNK
     Route: 042
     Dates: start: 20190417, end: 20190417
  5. OXALIPLATIN. [Suspect]
     Active Substance: OXALIPLATIN
     Dosage: 110 MG, UNK
     Route: 042
     Dates: start: 20190305, end: 20190305
  6. OXALIPLATIN. [Suspect]
     Active Substance: OXALIPLATIN
     Dosage: 110 MG, UNK
     Route: 042
     Dates: start: 20190327, end: 20190327
  7. OXALIPLATIN. [Suspect]
     Active Substance: OXALIPLATIN
     Dosage: 110 MG, UNK
     Route: 042
     Dates: start: 20190515, end: 20190515
  8. FLURACEDYL [FLUOROURACIL SODIUM] [Concomitant]
     Dosage: 519 + 3891 MG (20/02/19, 05/03/19, 27/03/19, 17/04/19, 30/04/19, 15/05/19)
     Route: 042
     Dates: start: 20190220, end: 20190515

REACTIONS (6)
  - Oxygen saturation decreased [Recovered/Resolved]
  - Hypersensitivity [Recovered/Resolved]
  - Pruritus [Recovered/Resolved]
  - Bronchospasm [Recovered/Resolved]
  - Rash [Recovered/Resolved]
  - Aphonia [Recovered/Resolved]

NARRATIVE: CASE EVENT DATE: 20190619
